FAERS Safety Report 24338623 (Version 1)
Quarter: 2024Q3

REPORT INFORMATION
  Report Type: Spontaneous
  Country: GB (occurrence: GB)
  Receive Date: 20240919
  Receipt Date: 20240919
  Transmission Date: 20241017
  Serious: Yes (Hospitalization, Other)
  Sender: B BRAUN
  Company Number: GB-B.Braun Medical Inc.-2161783

PATIENT
  Sex: Female
  Weight: 89 kg

DRUGS (28)
  1. ACETAMINOPHEN [Suspect]
     Active Substance: ACETAMINOPHEN
  2. SIMVASTATIN [Suspect]
     Active Substance: SIMVASTATIN
  3. POTASSIUM [Concomitant]
     Active Substance: POTASSIUM
  4. OXETACAINE [Concomitant]
     Active Substance: OXETHAZAINE
  5. ONDANSETRON HYDROCHLORIDE [Concomitant]
     Active Substance: ONDANSETRON HYDROCHLORIDE
  6. METFORMIN [Concomitant]
     Active Substance: METFORMIN HYDROCHLORIDE
  7. LOPERAMIDE [Concomitant]
     Active Substance: LOPERAMIDE
  8. BUTYLSCOPOLAMINE BROMIDE [Concomitant]
     Active Substance: BUTYLSCOPOLAMINE BROMIDE
  9. FAMOTIDINE [Concomitant]
     Active Substance: FAMOTIDINE
  10. CODEINE PHOSPHATE [Concomitant]
     Active Substance: CODEINE PHOSPHATE
  11. ACYCLOVIR [Concomitant]
     Active Substance: ACYCLOVIR
  12. COTRIMOXAZOLE [Concomitant]
     Active Substance: SULFAMETHOXAZOLE\TRIMETHOPRIM
  13. CHOLECALCIFEROL [Concomitant]
     Active Substance: CHOLECALCIFEROL
  14. TRESIBA [Concomitant]
     Active Substance: INSULIN DEGLUDEC
  15. OMEPRAZOLE [Concomitant]
     Active Substance: OMEPRAZOLE
  16. NOVORAPID [Concomitant]
     Active Substance: INSULIN ASPART
  17. GLUCOPHAGE [Concomitant]
     Active Substance: METFORMIN HYDROCHLORIDE
  18. INDAPAMIDE [Concomitant]
     Active Substance: INDAPAMIDE
  19. DAPAGLIFLOZIN [Concomitant]
     Active Substance: DAPAGLIFLOZIN
  20. GRANULOCYTE COLONY-STIMULATING FACTOR NOS [Suspect]
     Active Substance: GRANULOCYTE COLONY-STIMULATING FACTOR NOS
  21. PLERIXAFOR [Suspect]
     Active Substance: PLERIXAFOR
  22. CARMUSTINE [Suspect]
     Active Substance: CARMUSTINE
  23. CYTARABINE [Suspect]
     Active Substance: CYTARABINE
  24. ETOPOSIDE [Suspect]
     Active Substance: ETOPOSIDE
  25. CARBOPLATIN [Suspect]
     Active Substance: CARBOPLATIN
  26. IFOSFAMIDE [Suspect]
     Active Substance: IFOSFAMIDE
  27. RITUXIMAB [Suspect]
     Active Substance: RITUXIMAB
  28. PEMBROLIZUMAB [Suspect]
     Active Substance: PEMBROLIZUMAB

REACTIONS (6)
  - Dyspnoea [Recovered/Resolved]
  - Mobility decreased [Recovered/Resolved]
  - Alanine aminotransferase increased [Recovered/Resolved]
  - Acute respiratory distress syndrome [Recovered/Resolved]
  - Colitis [Recovered/Resolved]
  - Acute kidney injury [Recovered/Resolved]
